FAERS Safety Report 14679879 (Version 1)
Quarter: 2018Q1

REPORT INFORMATION
  Report Type: Spontaneous
  Country: US (occurrence: US)
  Receive Date: 20180325
  Receipt Date: 20180325
  Transmission Date: 20180509
  Serious: No
  Sender: FDA-Public Use
  Company Number: None

PATIENT
  Age: 60 Year
  Sex: Female
  Weight: 66.6 kg

DRUGS (4)
  1. OXYCODONE/ACETAMINOPHEN 5-325 MG TAB [Suspect]
     Active Substance: ACETAMINOPHEN\OXYCODONE HYDROCHLORIDE
     Indication: PAIN
     Dosage: ?          QUANTITY:1 TABLET(S);?
     Route: 048
     Dates: start: 20180313, end: 20180325
  2. ROBAXIN [Concomitant]
     Active Substance: METHOCARBAMOL
  3. ASPIRIN. [Concomitant]
     Active Substance: ASPIRIN
  4. NAPROXIN [Concomitant]
     Active Substance: NAPROXEN

REACTIONS (7)
  - Somnolence [None]
  - Pruritus [None]
  - Euphoric mood [None]
  - Pain [None]
  - Product substitution issue [None]
  - Constipation [None]
  - Drug effect decreased [None]

NARRATIVE: CASE EVENT DATE: 20180313
